FAERS Safety Report 5215471-0 (Version None)
Quarter: 2007Q1

REPORT INFORMATION
  Report Type: 
  Country: None (occurrence: None)
  Receive Date: 20070119
  Receipt Date: 20070119
  Transmission Date: 20070707
  Serious: No
  Sender: FDA-Public Use
  Company Number: None

PATIENT
  Sex: Female

DRUGS (2)
  1. VISIPAQUE [Suspect]
     Indication: COMPUTERISED TOMOGRAM ABDOMEN
     Dosage: 320 MG/ML - 100 ML GIVEN IV
     Route: 042
     Dates: start: 20070110
  2. VISIPAQUE [Suspect]
     Indication: COMPUTERISED TOMOGRAM ABDOMEN
     Dosage: 320 MG/ML - 100 ML GIVEN IV
     Route: 042
     Dates: start: 20070110

REACTIONS (1)
  - PRURITUS [None]
